FAERS Safety Report 22032534 (Version 2)
Quarter: 2023Q2

REPORT INFORMATION
  Report Type: Spontaneous
  Country: US (occurrence: None)
  Receive Date: 20230224
  Receipt Date: 20230404
  Transmission Date: 20230721
  Serious: Yes (Other)
  Sender: FDA-Public Use
  Company Number: US-FARMAPROD-202302-0400

PATIENT
  Sex: Female

DRUGS (42)
  1. OXERVATE [Suspect]
     Active Substance: CENEGERMIN-BKBJ
     Indication: Neurotrophic keratopathy
     Route: 047
     Dates: start: 20230208
  2. LANTUS [Concomitant]
     Active Substance: INSULIN GLARGINE
     Dosage: VIAL
  3. QULIPTA [Concomitant]
     Active Substance: ATOGEPANT
  4. ZIOPTAN [Concomitant]
     Active Substance: TAFLUPROST
  5. ACTEMRA [Concomitant]
     Active Substance: TOCILIZUMAB
     Dosage: 62 MG/0.9 SYRINGE
  6. ALPHAGAN P [Concomitant]
     Active Substance: BRIMONIDINE TARTRATE
  7. NIFEDIPINE [Concomitant]
     Active Substance: NIFEDIPINE
  8. ELIQUIS [Concomitant]
     Active Substance: APIXABAN
  9. ZYRTEC [Concomitant]
     Active Substance: CETIRIZINE HYDROCHLORIDE
  10. ONDANSETRON HYDROCHLORIDE [Concomitant]
     Active Substance: ONDANSETRON HYDROCHLORIDE
  11. XOPENEX HFA [Concomitant]
     Active Substance: LEVALBUTEROL TARTRATE
     Dosage: HYDROFLUOROALKANE, AEROSOL WITH ADAPTER
  12. XOPENEX [Concomitant]
     Active Substance: LEVALBUTEROL HYDROCHLORIDE
     Dosage: 0.31 MG / 3 ML VIAL-NEBULIZER
  13. VOLTAREN ARTHRITIS PAIN [Concomitant]
     Active Substance: DICLOFENAC SODIUM
  14. VITAMIN D2 [Concomitant]
     Active Substance: ERGOCALCIFEROL
  15. SYMBICORT [Concomitant]
     Active Substance: BUDESONIDE\FORMOTEROL FUMARATE DIHYDRATE
     Dosage: 160-4.5MCG HYDROFLUOROALKANE AEROSOL WITH ADAPTER.
  16. SUCRALFATE [Concomitant]
     Active Substance: SUCRALFATE
  17. SODIUM BICARBONATE [Concomitant]
     Active Substance: SODIUM BICARBONATE
  18. PREPARATION H NOS [Concomitant]
     Active Substance: COCOA BUTTER\PETROLATUM\PHENYLEPHRINE HYDROCHLORIDE\PHENYLEPHRINE HYDROCHLORIDE OR MINERAL OIL
     Dosage: 0.25%-1%
  19. COMPAZINE [Concomitant]
     Active Substance: PROCHLORPERAZINE MALEATE
  20. PREDNISONE [Concomitant]
     Active Substance: PREDNISONE
  21. ACETAMINOPHEN\OXYCODONE HYDROCHLORIDE [Concomitant]
     Active Substance: ACETAMINOPHEN\OXYCODONE HYDROCHLORIDE
  22. NITRO-DUR [Concomitant]
     Active Substance: NITROGLYCERIN
     Dosage: 0.1 MG / HOUR PATCH THREE DAY 24
  23. NITRO-BID [Concomitant]
     Active Substance: NITROGLYCERIN
  24. NASACORT [Concomitant]
     Active Substance: TRIAMCINOLONE ACETONIDE
  25. FUROSEMIDE [Concomitant]
     Active Substance: FUROSEMIDE
  26. METOPROLOL SUCCINATE [Concomitant]
     Active Substance: METOPROLOL SUCCINATE
  27. MECLIZINE HYDROCHLORIDE [Concomitant]
     Active Substance: MECLIZINE HYDROCHLORIDE
  28. IMODIUM [Concomitant]
     Active Substance: LOPERAMIDE HYDROCHLORIDE
  29. LIDODERM [Concomitant]
     Active Substance: LIDOCAINE
     Dosage: ADHESIVE PATCH
  30. KLOR-CON M10 [Concomitant]
     Active Substance: POTASSIUM CHLORIDE
     Dosage: SUSTAINED ACTION TABLETS
  31. KETOCONAZOLE [Concomitant]
     Active Substance: KETOCONAZOLE
  32. GENTEAL TEARS [Concomitant]
     Active Substance: DEXTRAN 70\HYPROMELLOSE 2910 (4000 MPA.S)
     Dosage: 0.1%-0.3%
  33. DICYCLOMINE HYDROCHLORIDE [Concomitant]
     Active Substance: DICYCLOMINE HYDROCHLORIDE
  34. DIAZEPAM [Concomitant]
     Active Substance: DIAZEPAM
  35. CYCLOBENZAPRINE HYDROCHLORIDE [Concomitant]
     Active Substance: CYCLOBENZAPRINE HYDROCHLORIDE
  36. BUTALBITAL-ACETAMINOPHEN-CAFFE [Concomitant]
  37. BENADRYL [Concomitant]
     Active Substance: DIPHENHYDRAMINE HYDROCHLORIDE
  38. LORAZEPAM [Concomitant]
     Active Substance: LORAZEPAM
  39. ALLEGRA ALLERGY [Concomitant]
     Active Substance: FEXOFENADINE HYDROCHLORIDE
  40. OXYGEN [Concomitant]
     Active Substance: OXYGEN
  41. LASIX [Concomitant]
     Active Substance: FUROSEMIDE
  42. EPLERENONE [Concomitant]
     Active Substance: EPLERENONE

REACTIONS (10)
  - Cardiac failure [Unknown]
  - Fluid retention [Unknown]
  - Weight increased [Unknown]
  - Eye pain [Recovering/Resolving]
  - Eye irritation [Unknown]
  - Ocular hyperaemia [Recovering/Resolving]
  - Dry eye [Recovering/Resolving]
  - Vision blurred [Recovering/Resolving]
  - Blood pressure fluctuation [Recovered/Resolved]
  - Oxygen consumption increased [Unknown]
